FAERS Safety Report 24332289 (Version 1)
Quarter: 2024Q3

REPORT INFORMATION
  Report Type: Spontaneous
  Country: GB (occurrence: GB)
  Receive Date: 20240918
  Receipt Date: 20240918
  Transmission Date: 20241017
  Serious: Yes (Hospitalization)
  Sender: STRIDES
  Company Number: GB-STRIDES ARCOLAB LIMITED-2024SP011733

PATIENT
  Age: 26 Year
  Sex: Female

DRUGS (15)
  1. ETOPOSIDE [Suspect]
     Active Substance: ETOPOSIDE
     Indication: Hyponatraemia
     Dosage: UNK, THREE CYCLE, (BEP)
     Route: 065
  2. ETOPOSIDE [Suspect]
     Active Substance: ETOPOSIDE
     Indication: Teratoma
  3. ETOPOSIDE [Suspect]
     Active Substance: ETOPOSIDE
     Indication: Peritoneal gliomatosis
  4. ETOPOSIDE [Suspect]
     Active Substance: ETOPOSIDE
     Indication: Growing teratoma syndrome
  5. ETOPOSIDE [Suspect]
     Active Substance: ETOPOSIDE
     Indication: Ovarian cancer
  6. BLEOMYCIN [Suspect]
     Active Substance: BLEOMYCIN SULFATE
     Indication: Hyponatraemia
     Dosage: UNK, CYCLICAL
     Route: 065
  7. BLEOMYCIN [Suspect]
     Active Substance: BLEOMYCIN SULFATE
     Indication: Teratoma
  8. BLEOMYCIN [Suspect]
     Active Substance: BLEOMYCIN SULFATE
     Indication: Peritoneal gliomatosis
  9. BLEOMYCIN [Suspect]
     Active Substance: BLEOMYCIN SULFATE
     Indication: Growing teratoma syndrome
  10. BLEOMYCIN [Suspect]
     Active Substance: BLEOMYCIN SULFATE
     Indication: Ovarian cancer
  11. CISPLATIN [Suspect]
     Active Substance: CISPLATIN
     Indication: Hyponatraemia
     Dosage: UNK, THREE CYCLE, (BEP)
     Route: 065
  12. CISPLATIN [Suspect]
     Active Substance: CISPLATIN
     Indication: Teratoma
  13. CISPLATIN [Suspect]
     Active Substance: CISPLATIN
     Indication: Peritoneal gliomatosis
  14. CISPLATIN [Suspect]
     Active Substance: CISPLATIN
     Indication: Growing teratoma syndrome
  15. CISPLATIN [Suspect]
     Active Substance: CISPLATIN
     Indication: Ovarian cancer

REACTIONS (5)
  - Ascites [Unknown]
  - Therapy partial responder [Unknown]
  - Disease recurrence [Recovered/Resolved]
  - Malignant neoplasm progression [Recovered/Resolved]
  - Off label use [Unknown]
